FAERS Safety Report 8155028-5 (Version None)
Quarter: 2012Q1

REPORT INFORMATION
  Report Type: 
  Country: None (occurrence: None)
  Receive Date: 20120221
  Receipt Date: 20120217
  Transmission Date: 20120608
  Serious: Yes (Death, Other)
  Sender: FDA-Public Use
  Company Number: DE-B.I. PHARMACEUTICALS,INC./RIDGEFIELD-2011-DE-05952DE

PATIENT
  Sex: Female
  Weight: 193 kg

DRUGS (10)
  1. RAMIPRIL [Concomitant]
  2. ALLOPURINOL [Concomitant]
     Dosage: 100 MG
  3. HUMALOG [Concomitant]
     Route: 058
  4. BISOPROLOL FUMARATE [Concomitant]
     Indication: ATRIAL FIBRILLATION
     Dosage: 10 MG
     Route: 048
  5. DIGITOXIN TAB [Concomitant]
     Indication: ATRIAL FIBRILLATION
     Dosage: 0.1 MG
     Route: 048
  6. PRADAXA [Suspect]
     Indication: ATRIAL FIBRILLATION
     Dosage: 300 MG
     Route: 048
     Dates: start: 20110928, end: 20111017
  7. TORSEMIDE [Concomitant]
     Indication: CARDIAC FAILURE
     Dosage: 50 MG
     Route: 048
  8. CITALOPRAM HYDROBROMIDE [Concomitant]
     Dosage: 2 ANZ
  9. FERROUS SULFATE TAB [Concomitant]
  10. HYDROCHLOROTHIAZIDE [Concomitant]

REACTIONS (16)
  - CARDIOMYOPATHY [None]
  - MULTI-ORGAN FAILURE [None]
  - SKIN ULCER [None]
  - ACUTE RESPIRATORY DISTRESS SYNDROME [None]
  - RENAL FAILURE [None]
  - ERYSIPELAS [None]
  - SEPSIS [None]
  - RENAL IMPAIRMENT [None]
  - HYSTEROSCOPY [None]
  - UTERINE DILATION AND CURETTAGE [None]
  - HAEMORRHAGE [None]
  - STASIS DERMATITIS [None]
  - VAGINAL HAEMORRHAGE [None]
  - OVERDOSE [None]
  - UTERINE HAEMORRHAGE [None]
  - OXYGEN SATURATION ABNORMAL [None]
